FAERS Safety Report 7295562-3 (Version None)
Quarter: 2011Q1

REPORT INFORMATION
  Report Type: 
  Country: None (occurrence: None)
  Receive Date: 20110211
  Receipt Date: 20110211
  Transmission Date: 20110831
  Serious: Yes (Disabling, Other)
  Sender: FDA-Public Use
  Company Number: None

PATIENT
  Sex: Female
  Weight: 60.3284 kg

DRUGS (5)
  1. ACTONEL [Suspect]
     Indication: OSTEOPENIA
     Dosage: 150 MG  Q MONTH ORAL
     Route: 048
     Dates: start: 20110125
  2. CALCIUM [Concomitant]
  3. IRON [Concomitant]
  4. ACTONEL [Suspect]
  5. VITAMIN D [Concomitant]

REACTIONS (8)
  - PAIN IN EXTREMITY [None]
  - ABDOMINAL DISCOMFORT [None]
  - NECK PAIN [None]
  - DYSPEPSIA [None]
  - MYALGIA [None]
  - ARTHRALGIA [None]
  - DIZZINESS [None]
  - PAIN [None]
